FAERS Safety Report 19327547 (Version 2)
Quarter: 2021Q3

REPORT INFORMATION
  Report Type: Spontaneous
  Country: JP (occurrence: JP)
  Receive Date: 20210528
  Receipt Date: 20210728
  Transmission Date: 20211014
  Serious: Yes (Death, Hospitalization, Other)
  Sender: FDA-Public Use
  Company Number: JP-COVIS PHARMA GMBH-2021COV22475

PATIENT
  Age: 79 Year
  Sex: Male

DRUGS (21)
  1. ALVESCO [Suspect]
     Active Substance: CICLESONIDE
     Indication: COVID-19
     Route: 055
     Dates: start: 20200804, end: 20200810
  2. METHYLPREDNISOLONE. [Suspect]
     Active Substance: METHYLPREDNISOLONE
     Dates: start: 20200820, end: 20200826
  3. METHOTREXATE. [Suspect]
     Active Substance: METHOTREXATE
     Indication: POLYMYALGIA RHEUMATICA
     Route: 048
  4. PREDNISOLONE. [Suspect]
     Active Substance: PREDNISOLONE
     Indication: COVID-19
  5. IVERMECTIN. [Suspect]
     Active Substance: IVERMECTIN
     Indication: COVID-19
     Route: 048
     Dates: start: 20200807, end: 20200807
  6. PREDNISOLONE. [Suspect]
     Active Substance: PREDNISOLONE
     Indication: POLYMYALGIA RHEUMATICA
     Dosage: FROM 2 YEARS AGO
     Route: 048
  7. ALVESCO [Suspect]
     Active Substance: CICLESONIDE
     Indication: ASTHMA
  8. DEXAMETHASONE. [Suspect]
     Active Substance: DEXAMETHASONE
     Indication: COVID-19
     Route: 065
  9. METHYLPREDNISOLONE. [Suspect]
     Active Substance: METHYLPREDNISOLONE
     Dates: start: 20200813, end: 20200819
  10. REMDESIVIR. [Suspect]
     Active Substance: REMDESIVIR
     Indication: COVID-19
     Dates: start: 20200808, end: 20200808
  11. METHYLPREDNISOLONE. [Suspect]
     Active Substance: METHYLPREDNISOLONE
     Indication: COVID-19
     Dates: start: 20200810, end: 20200812
  12. BETAMETHASONE. [Suspect]
     Active Substance: BETAMETHASONE
     Indication: COVID-19
  13. METFORMIN HYDROCHLORIDE. [Concomitant]
     Active Substance: METFORMIN HYDROCHLORIDE
     Indication: DIABETES MELLITUS
     Route: 048
  14. JARDIANCE [Concomitant]
     Active Substance: EMPAGLIFLOZIN
     Indication: DIABETES MELLITUS
     Route: 048
  15. REMDESIVIR. [Suspect]
     Active Substance: REMDESIVIR
     Dates: start: 20200809, end: 20200817
  16. HEPARIN [Suspect]
     Active Substance: HEPARIN SODIUM
     Indication: COVID-19
     Route: 065
  17. MEROPENEM. [Suspect]
     Active Substance: MEROPENEM
     Indication: COVID-19
     Route: 065
  18. METHYLPREDNISOLONE. [Suspect]
     Active Substance: METHYLPREDNISOLONE
     Dates: start: 20200827, end: 20200830
  19. ALLOPURINOL. [Concomitant]
     Active Substance: ALLOPURINOL
     Indication: HYPERURICAEMIA
  20. CRESTOR [Concomitant]
     Active Substance: ROSUVASTATIN CALCIUM
     Indication: DYSLIPIDAEMIA
  21. BETAMETHASONE. [Suspect]
     Active Substance: BETAMETHASONE
     Indication: POLYMYALGIA RHEUMATICA
     Route: 065

REACTIONS (3)
  - COVID-19 [Recovering/Resolving]
  - Aspergillus infection [Fatal]
  - Drug ineffective for unapproved indication [Unknown]

NARRATIVE: CASE EVENT DATE: 20200810
